FAERS Safety Report 23133667 (Version 1)
Quarter: 2023Q4

REPORT INFORMATION
  Report Type: Spontaneous
  Country: US (occurrence: US)
  Receive Date: 20231101
  Receipt Date: 20231101
  Transmission Date: 20240110
  Serious: Yes (Other)
  Sender: FDA-Public Use
  Company Number: US-MLMSERVICE-20200522-2313547-1

PATIENT
  Age: 89 Year
  Sex: Male

DRUGS (7)
  1. PREDNISOLONE ACETATE [Suspect]
     Active Substance: PREDNISOLONE ACETATE
     Indication: Ocular surface squamous neoplasia
     Dosage: WEEKLY 4,3,2,1 PREDNISOLONE ACETATE 1 PERCENT TAPER.
     Route: 065
  2. LATANOPROST [Suspect]
     Active Substance: LATANOPROST
     Indication: Glaucoma
     Dosage: ONCE AT NIGHT IN THE LEFT EYE
     Route: 065
  3. DORZOLAMIDE [Suspect]
     Active Substance: DORZOLAMIDE
     Indication: Glaucoma
     Dosage: ONCE IN THE MORNING IN THE LEFT EYE
     Route: 065
  4. LOTEPREDNOL ETABONATE [Suspect]
     Active Substance: LOTEPREDNOL ETABONATE
     Indication: Glaucoma
     Dosage: IN THE LEFT EYE
     Route: 065
  5. INTERFERON ALFA-2B [Suspect]
     Active Substance: INTERFERON ALFA-2B
     Indication: Ocular surface squamous neoplasia
     Dosage: 1 MILLIONUNITS/1ML
     Route: 061
  6. VIGAMOX [Concomitant]
     Active Substance: MOXIFLOXACIN HYDROCHLORIDE
     Indication: Product used for unknown indication
  7. MURO [Concomitant]
     Indication: Corneal erosion
     Dosage: TO THE LEFT EYE

REACTIONS (1)
  - Ulcerative keratitis [Unknown]
